FAERS Safety Report 5469207-9 (Version None)
Quarter: 2007Q3

REPORT INFORMATION
  Report Type: 
  Country: None (occurrence: None)
  Receive Date: 20070927
  Receipt Date: 20070918
  Transmission Date: 20080115
  Serious: Yes (Hospitalization)
  Sender: FDA-Public Use
  Company Number: US-JNJFOC-20070904097

PATIENT
  Sex: Female
  Weight: 75.3 kg

DRUGS (1)
  1. DURAGESIC-100 [Suspect]
     Indication: OSTEOARTHRITIS
     Route: 062

REACTIONS (2)
  - DIVERTICULITIS [None]
  - DIVERTICULUM [None]
